FAERS Safety Report 7955163-8 (Version None)
Quarter: 2011Q4

REPORT INFORMATION
  Report Type: 
  Country: None (occurrence: None)
  Receive Date: 20111202
  Receipt Date: 20111123
  Transmission Date: 20120403
  Serious: Yes (Other)
  Sender: FDA-Public Use
  Company Number: US-PERRIGO-11US010347

PATIENT
  Sex: Female
  Weight: 12.245 kg

DRUGS (1)
  1. ACETAMINOPHEN [Suspect]
     Indication: ACCIDENTAL EXPOSURE
     Dosage: UNK
     Route: 048
     Dates: start: 20111112, end: 20111112

REACTIONS (1)
  - ACCIDENTAL EXPOSURE [None]
